FAERS Safety Report 15734497 (Version 2)
Quarter: 2019Q1

REPORT INFORMATION
  Report Type: Spontaneous
  Country: CR (occurrence: CR)
  Receive Date: 20181218
  Receipt Date: 20190206
  Transmission Date: 20190417
  Serious: Yes (Other)
  Sender: FDA-Public Use
  Company Number: PHHY2018CR184549

PATIENT
  Age: 26 Year
  Sex: Male
  Weight: 100 kg

DRUGS (1)
  1. TEGRETOL [Suspect]
     Active Substance: CARBAMAZEPINE
     Indication: SEIZURE
     Dosage: 400 MG, BID (IN THE MORNING AND AT NIGHT)
     Route: 065
     Dates: start: 201610

REACTIONS (5)
  - Headache [Recovered/Resolved]
  - Seizure [Recovered/Resolved]
  - Limb discomfort [Recovered/Resolved]
  - Respiratory tract infection bacterial [Recovered/Resolved]
  - Cough [Recovered/Resolved]

NARRATIVE: CASE EVENT DATE: 20181208
